FAERS Safety Report 24322804 (Version 1)
Quarter: 2024Q3

REPORT INFORMATION
  Report Type: Report from Study
  Country: CA (occurrence: CA)
  Receive Date: 20240916
  Receipt Date: 20240916
  Transmission Date: 20241017
  Serious: Yes (Other)
  Sender: NOVARTIS
  Company Number: CA-002147023-NVSC2024CA155429

PATIENT
  Age: 72 Year
  Sex: Female

DRUGS (5)
  1. GLEEVEC [Suspect]
     Active Substance: IMATINIB MESYLATE
     Indication: Chronic myeloid leukaemia
     Dosage: 400 MG, QD
     Route: 065
     Dates: start: 20230925, end: 202311
  2. GLEEVEC [Suspect]
     Active Substance: IMATINIB MESYLATE
     Dosage: 350 MG, QD
     Route: 065
     Dates: start: 202311, end: 202401
  3. GLEEVEC [Suspect]
     Active Substance: IMATINIB MESYLATE
     Dosage: 200 MG, QD
     Route: 065
     Dates: start: 202401, end: 20240131
  4. GLEEVEC [Suspect]
     Active Substance: IMATINIB MESYLATE
     Dosage: 100 MG, QD
     Route: 065
     Dates: start: 20240131
  5. SPRYCEL [Concomitant]
     Active Substance: DASATINIB
     Indication: Chronic myeloid leukaemia
     Dosage: 70 MG
     Route: 065
     Dates: start: 20240307, end: 202407

REACTIONS (8)
  - Chylothorax [Unknown]
  - Drug intolerance [Unknown]
  - Pleural effusion [Unknown]
  - Diarrhoea [Unknown]
  - Dyspepsia [Unknown]
  - Gastrointestinal toxicity [Unknown]
  - Weight decreased [Unknown]
  - Decreased appetite [Unknown]
